FAERS Safety Report 5470329-7 (Version None)
Quarter: 2007Q3

REPORT INFORMATION
  Report Type: 
  Country: None (occurrence: None)
  Receive Date: 20070925
  Receipt Date: 20070914
  Transmission Date: 20080115
  Serious: Yes (Other)
  Sender: FDA-Public Use
  Company Number: 17491

PATIENT
  Age: 42 Year
  Sex: Female

DRUGS (6)
  1. CYTARABINE [Suspect]
     Indication: T-CELL CHRONIC LYMPHOCYTIC LEUKAEMIA
  2. ETOPOSIDE [Suspect]
     Indication: T-CELL CHRONIC LYMPHOCYTIC LEUKAEMIA
  3. CAMPATH [Suspect]
     Indication: T-CELL CHRONIC LYMPHOCYTIC LEUKAEMIA
  4. CARMUSTINE [Suspect]
     Indication: T-CELL CHRONIC LYMPHOCYTIC LEUKAEMIA
  5. MELPHALAN [Suspect]
     Indication: T-CELL CHRONIC LYMPHOCYTIC LEUKAEMIA
  6. ACYCLOVIR [Concomitant]

REACTIONS (2)
  - HERPES ZOSTER [None]
  - HYPERKERATOSIS [None]
